FAERS Safety Report 7251346-3 (Version None)
Quarter: 2011Q1

REPORT INFORMATION
  Report Type: 
  Country: None (occurrence: None)
  Receive Date: 20110119
  Receipt Date: 20110107
  Transmission Date: 20110831
  Serious: Yes (Hospitalization)
  Sender: FDA-Public Use
  Company Number: JPI-P-010083

PATIENT
  Age: 25 Year
  Sex: Male
  Weight: 71.2147 kg

DRUGS (18)
  1. QUETIAPINE FUMARATE [Suspect]
     Indication: SLEEP DISORDER
     Dosage: (25 MG,1 D),ORAL
     Route: 048
     Dates: end: 20100423
  2. ESCITALOPRAM [Concomitant]
  3. CLONAZEPAM [Suspect]
     Indication: PRODUCT USED FOR UNKNOWN INDICATION
     Dosage: ORAL
     Route: 048
     Dates: end: 20100202
  4. DULOXETINE HYDROCHLORIDE [Concomitant]
  5. LORAZEPAM [Concomitant]
  6. ALPRAZOLAM [Suspect]
     Indication: PRODUCT USED FOR UNKNOWN INDICATION
     Dosage: (1-2 MILLIGRAM),ORAL
     Route: 048
  7. XYREM [Suspect]
     Indication: CATAPLEXY
     Dosage: SEE IMAGE
     Route: 048
     Dates: start: 20100101, end: 20100101
  8. XYREM [Suspect]
     Indication: CATAPLEXY
     Dosage: SEE IMAGE
     Route: 048
     Dates: start: 20100201, end: 20100218
  9. XYREM [Suspect]
     Indication: CATAPLEXY
     Dosage: SEE IMAGE
     Route: 048
     Dates: start: 20100101, end: 20100101
  10. XYREM [Suspect]
     Indication: CATAPLEXY
     Dosage: SEE IMAGE
     Route: 048
     Dates: start: 20100101, end: 20100101
  11. XYREM [Suspect]
     Indication: CATAPLEXY
     Dosage: SEE IMAGE
     Route: 048
     Dates: start: 20100203, end: 20100201
  12. XYREM [Suspect]
     Indication: CATAPLEXY
     Dosage: SEE IMAGE
     Route: 048
     Dates: start: 20100219, end: 20100101
  13. XYREM [Suspect]
     Indication: CATAPLEXY
     Dosage: SEE IMAGE
     Route: 048
     Dates: start: 20100101, end: 20100101
  14. XYREM [Suspect]
     Indication: CATAPLEXY
     Dosage: SEE IMAGE
     Route: 048
     Dates: start: 20100101, end: 20100101
  15. XYREM [Suspect]
     Indication: CATAPLEXY
     Dosage: SEE IMAGE
     Route: 048
     Dates: start: 20100101, end: 20100101
  16. PAROXETINE HYDROCHLORIDE [Concomitant]
  17. ZALEPLON [Concomitant]
  18. TIAGABINE HYDROCHLORIDE [Concomitant]

REACTIONS (23)
  - ASTHENIA [None]
  - DISORIENTATION [None]
  - FEELING ABNORMAL [None]
  - HYPOAESTHESIA [None]
  - DRUG EFFECT DECREASED [None]
  - DIZZINESS [None]
  - MALAISE [None]
  - VOMITING [None]
  - SEDATION [None]
  - INSOMNIA [None]
  - VISION BLURRED [None]
  - DECREASED APPETITE [None]
  - HYPOAESTHESIA FACIAL [None]
  - TREMOR [None]
  - FATIGUE [None]
  - ANXIETY [None]
  - WEIGHT DECREASED [None]
  - SOMNOLENCE [None]
  - MUSCLE TWITCHING [None]
  - DRUG WITHDRAWAL SYNDROME [None]
  - COLONIC OBSTRUCTION [None]
  - NAUSEA [None]
  - SINUS TACHYCARDIA [None]
